FAERS Safety Report 4694754-7 (Version None)
Quarter: 2005Q2

REPORT INFORMATION
  Report Type: 
  Country: None (occurrence: None)
  Receive Date: 20050620
  Receipt Date: 20030430
  Transmission Date: 20051028
  Serious: Yes (Death, Hospitalization, Other)
  Sender: FDA-Public Use
  Company Number: PHBS2003IN04564

PATIENT
  Age: 43 Year
  Sex: Female

DRUGS (3)
  1. GLEEVEC [Suspect]
     Indication: CHRONIC MYELOID LEUKAEMIA
     Dosage: 400 MG, QD
     Route: 048
     Dates: start: 20030202, end: 20030301
  2. GLEEVEC [Suspect]
     Dosage: 400 MG, QD
     Route: 048
     Dates: end: 20030414
  3. INTERFERON [Suspect]

REACTIONS (13)
  - BONE MARROW DEPRESSION [None]
  - DYSPNOEA [None]
  - ESCHERICHIA INFECTION [None]
  - FEBRILE NEUTROPENIA [None]
  - GASTROENTERITIS [None]
  - GENERAL PHYSICAL HEALTH DETERIORATION [None]
  - MUCORMYCOSIS [None]
  - PANCYTOPENIA [None]
  - PNEUMONIA [None]
  - PYREXIA [None]
  - RECTAL HAEMORRHAGE [None]
  - RESPIRATORY FAILURE [None]
  - WHITE BLOOD CELL COUNT DECREASED [None]
